FAERS Safety Report 4561390-2 (Version None)
Quarter: 2005Q1

REPORT INFORMATION
  Report Type: 
  Country: None (occurrence: None)
  Receive Date: 20050126
  Receipt Date: 20041105
  Transmission Date: 20050727
  Serious: Yes (Death)
  Sender: FDA-Public Use
  Company Number: US-ROCHE-385817

PATIENT
  Age: 66 Year
  Sex: Female

DRUGS (16)
  1. TORADOL [Suspect]
     Indication: DRUG USE FOR UNKNOWN INDICATION
     Dosage: MANUFACTURER UNKNOWN.
     Route: 042
     Dates: start: 19971102, end: 19971102
  2. ASPIRIN [Concomitant]
     Route: 048
     Dates: end: 19970615
  3. COUMADIN [Concomitant]
  4. HEPARIN [Concomitant]
  5. OMEPRAZOLE [Concomitant]
     Route: 048
  6. KEFLEX [Concomitant]
  7. PEPCID [Concomitant]
  8. LOPRESSOR [Concomitant]
     Dosage: DOSAGE INCREASED TO 100 MG TWICE DAILY ON 27 OCTOBER 2004 FOR ONE DAY.
     Route: 048
  9. CARDIZEM CD [Concomitant]
     Dosage: DECREASED TO 120 MG ON 02 NOVEMBER 2004 (APPROX.).
     Route: 048
  10. DOCUSATE [Concomitant]
     Route: 048
  11. LASIX [Concomitant]
  12. EPINEPHRINE [Concomitant]
  13. LEVOFLOXACIN [Concomitant]
  14. DEMADEX [Concomitant]
  15. DIURIL [Concomitant]
  16. DARVOCET-N 100 [Concomitant]

REACTIONS (27)
  - ALANINE AMINOTRANSFERASE INCREASED [None]
  - ANGINA UNSTABLE [None]
  - ARTERIAL THROMBOSIS LIMB [None]
  - ARTERIOSCLEROSIS [None]
  - ASPARTATE AMINOTRANSFERASE INCREASED [None]
  - BLOOD BILIRUBIN INCREASED [None]
  - BLOOD LACTATE DEHYDROGENASE INCREASED [None]
  - CARDIAC OUTPUT DECREASED [None]
  - CARDIO-RESPIRATORY ARREST [None]
  - COMPARTMENT SYNDROME [None]
  - CORONARY ARTERY STENOSIS [None]
  - DISSEMINATED INTRAVASCULAR COAGULATION [None]
  - DRUG INTERACTION POTENTIATION [None]
  - GASTROINTESTINAL HAEMORRHAGE [None]
  - GENERAL PHYSICAL HEALTH DETERIORATION [None]
  - HAEMORRHAGE [None]
  - ISCHAEMIC HEPATITIS [None]
  - METABOLIC ACIDOSIS [None]
  - MITRAL VALVE INCOMPETENCE [None]
  - POST PROCEDURAL HAEMORRHAGE [None]
  - RENAL ARTERY STENOSIS [None]
  - RENAL FAILURE [None]
  - RENAL FAILURE ACUTE [None]
  - SUBCLAVIAN VEIN THROMBOSIS [None]
  - THROMBOCYTOPENIA [None]
  - THROMBOSIS [None]
  - WHITE CLOT SYNDROME [None]
